FAERS Safety Report 7166093-6 (Version None)
Quarter: 2010Q4

REPORT INFORMATION
  Report Type: 
  Country: None (occurrence: None)
  Receive Date: 20101216
  Receipt Date: 20101207
  Transmission Date: 20110411
  Serious: No
  Sender: FDA-Public Use
  Company Number: US-BIOGENIDEC-2010BI043446

PATIENT
  Sex: Male

DRUGS (2)
  1. AVONEX [Suspect]
     Indication: MULTIPLE SCLEROSIS
     Route: 030
     Dates: start: 19991031, end: 20060501
  2. AVONEX [Suspect]
     Route: 030
     Dates: end: 20101022

REACTIONS (3)
  - APATHY [None]
  - FALL [None]
  - PAIN [None]
